FAERS Safety Report 10217455 (Version 1)
Quarter: 2014Q2

REPORT INFORMATION
  Report Type: Spontaneous
  Country: US (occurrence: US)
  Receive Date: 20140604
  Receipt Date: 20140604
  Transmission Date: 20141212
  Serious: Yes (Other)
  Sender: FDA-Public Use
  Company Number: PHHY2014US064604

PATIENT
  Age: 69 Year
  Sex: Female
  Weight: 147 kg

DRUGS (6)
  1. ACICLOVIR [Suspect]
     Indication: HERPES ZOSTER
     Dosage: 800 MG, 5QD
     Route: 048
  2. ACICLOVIR [Suspect]
     Dosage: 1.5 G, ONCE/SINGLE
     Route: 042
  3. ACICLOVIR [Suspect]
     Dosage: 550 MG, QD
     Route: 042
  4. KETOROLAC [Suspect]
     Dosage: 30 MG
  5. PREDNISONE [Concomitant]
     Route: 062
  6. ONDANSETRON [Concomitant]
     Dosage: 4 MG

REACTIONS (7)
  - Neurotoxicity [Recovered/Resolved]
  - Confusional state [Recovered/Resolved]
  - Aphasia [Recovered/Resolved]
  - Dysphemia [Recovered/Resolved]
  - Hallucination, visual [Recovered/Resolved]
  - Mental status changes [Recovered/Resolved]
  - Renal failure acute [Recovered/Resolved]
